FAERS Safety Report 15000882 (Version 1)
Quarter: 2018Q2

REPORT INFORMATION
  Report Type: Spontaneous
  Country: GB (occurrence: GB)
  Receive Date: 20180612
  Receipt Date: 20180612
  Transmission Date: 20180711
  Serious: Yes (Other)
  Sender: FDA-Public Use
  Company Number: GB-BECTON DICKINSON-2018BDN00200

PATIENT
  Sex: Female

DRUGS (1)
  1. CHLORAPREP WITH TINT [Suspect]
     Active Substance: CHLORHEXIDINE GLUCONATE\ISOPROPYL ALCOHOL
     Dosage: UNK UNK, ONCE
     Dates: start: 20180423, end: 20180423

REACTIONS (6)
  - Chemical burns of eye [Unknown]
  - Occupational exposure to product [Unknown]
  - Product package associated injury [Unknown]
  - Foreign body in eye [Recovered/Resolved]
  - Accidental exposure to product [Unknown]
  - Drug administration error [Unknown]

NARRATIVE: CASE EVENT DATE: 20180423
